FAERS Safety Report 6987057-9 (Version None)
Quarter: 2010Q3

REPORT INFORMATION
  Report Type: 
  Country: None (occurrence: None)
  Receive Date: 20100916
  Receipt Date: 20100906
  Transmission Date: 20110219
  Serious: Yes (Hospitalization)
  Sender: FDA-Public Use
  Company Number: US-TEVA-247620USA

PATIENT
  Age: 58 Year
  Sex: Female

DRUGS (1)
  1. CABERGOLINE TABLETS 0.5 MG [Suspect]
     Indication: PROLACTINOMA
     Dosage: 0.5 MG TWICE WEEKLY

REACTIONS (1)
  - CEREBROSPINAL FLUID RHINORRHOEA [None]
